FAERS Safety Report 21443342 (Version 1)
Quarter: 2022Q4

REPORT INFORMATION
  Report Type: Spontaneous
  Country: US (occurrence: US)
  Receive Date: 20221012
  Receipt Date: 20221012
  Transmission Date: 20230113
  Serious: No
  Sender: FDA-Public Use
  Company Number: US-SA-SAC20221007000369

PATIENT
  Age: 57 Year
  Sex: Female

DRUGS (1)
  1. DUPIXENT [Suspect]
     Active Substance: DUPILUMAB
     Indication: Nasal polyps
     Dosage: DOSE: 300MG FREQUENCY: OTHER
     Route: 058
     Dates: start: 202110

REACTIONS (3)
  - Depressed mood [Unknown]
  - Osteoarthritis [Unknown]
  - Oral herpes [Unknown]
